FAERS Safety Report 8466796-7 (Version None)
Quarter: 2012Q2

REPORT INFORMATION
  Report Type: 
  Country: None (occurrence: None)
  Receive Date: 20120626
  Receipt Date: 20120613
  Transmission Date: 20120825
  Serious: Yes (Other)
  Sender: FDA-Public Use
  Company Number: US-PFIZER INC-2012143649

PATIENT
  Sex: Female
  Weight: 67.12 kg

DRUGS (11)
  1. BACILLUS CALMETTE-GUERIN (BCG) [Suspect]
     Indication: BLADDER CANCER
     Dosage: UNK
  2. LYRICA [Suspect]
     Indication: HERPES ZOSTER
     Dosage: 300 MG, DAILY
  3. BCG ORGANISMS-METHANOL EXTRACTION RESIDUE [Concomitant]
     Indication: TUBERCULOSIS BLADDER
     Dosage: UNK
  4. NEURONTIN [Suspect]
     Indication: HERPES ZOSTER
     Dosage: UNK
  5. PLAQUENIL [Concomitant]
     Indication: SYSTEMIC LUPUS ERYTHEMATOSUS
     Dosage: 200 MG, DAILY
  6. ELAVIL [Concomitant]
     Indication: SLEEP DISORDER
     Dosage: UNK
     Dates: start: 20120101
  7. LYRICA [Suspect]
     Dosage: 300 MG, 2X/DAY
  8. CRESTOR [Concomitant]
     Indication: BLOOD CHOLESTEROL INCREASED
     Dosage: 10 MG, DAILY
  9. VESICARE [Concomitant]
     Indication: INCONTINENCE
     Dosage: UNK
  10. LYRICA [Suspect]
     Dosage: UNK
  11. QUININE HYDROCHLORIDE [Concomitant]
     Indication: SYSTEMIC LUPUS ERYTHEMATOSUS
     Dosage: ''0.9MG''

REACTIONS (6)
  - PAIN [None]
  - POST-TRAUMATIC PAIN [None]
  - URINARY INCONTINENCE [None]
  - ROAD TRAFFIC ACCIDENT [None]
  - HYPOKINESIA [None]
  - BLADDER CANCER RECURRENT [None]
